FAERS Safety Report 19119077 (Version 1)
Quarter: 2021Q2

REPORT INFORMATION
  Report Type: Spontaneous
  Country: US (occurrence: US)
  Receive Date: 20210411
  Receipt Date: 20210411
  Transmission Date: 20210717
  Serious: No
  Sender: FDA-Public Use
  Company Number: US-ORGANON-O2103USA002866

PATIENT
  Age: 27 Year
  Sex: Female

DRUGS (1)
  1. BETAMETHASONE DIPROPIONATE AUGMENTED [Suspect]
     Active Substance: BETAMETHASONE DIPROPIONATE
     Indication: THYROID DERMATOPATHY
     Route: 061

REACTIONS (1)
  - Product use in unapproved indication [Unknown]
